FAERS Safety Report 5504604-4 (Version None)
Quarter: 2007Q4

REPORT INFORMATION
  Report Type: 
  Country: None (occurrence: None)
  Receive Date: 20071101
  Receipt Date: 20071011
  Transmission Date: 20080405
  Serious: No
  Sender: FDA-Public Use
  Company Number: US-BOEHRINGER INGELHEIM PHARMACEUTICALS, INC.-2007-BP-04516PF

PATIENT
  Sex: Female

DRUGS (10)
  1. SPIRIVA [Suspect]
     Indication: EMPHYSEMA
  2. CHANTIX [Suspect]
     Indication: SMOKING CESSATION THERAPY
     Dates: start: 20061001
  3. ADVAIR DISKUS 100/50 [Suspect]
  4. ALBUTEROL [Suspect]
     Route: 055
  5. SEROQUEL [Concomitant]
     Indication: DEPRESSION
  6. NORVASC [Concomitant]
     Indication: HYPERTENSION
  7. LIPITOR [Concomitant]
     Indication: BLOOD CHOLESTEROL INCREASED
  8. TRAMADOL HCL [Concomitant]
     Indication: ARTHRITIS
  9. CITALOPRAM HYDROBROMIDE [Concomitant]
     Indication: DEPRESSION
  10. FLUCONAZOLE [Concomitant]
     Indication: FUNGAL INFECTION

REACTIONS (5)
  - FUNGAL INFECTION [None]
  - LARYNGITIS [None]
  - NAUSEA [None]
  - STOMACH DISCOMFORT [None]
  - VOMITING [None]
